FAERS Safety Report 24058812 (Version 1)
Quarter: 2024Q3

REPORT INFORMATION
  Report Type: Spontaneous
  Country: JP (occurrence: None)
  Receive Date: 20240708
  Receipt Date: 20240708
  Transmission Date: 20241017
  Serious: Yes (Other)
  Sender: ACS DOBFAR
  Company Number: JP-ACS-20240228

PATIENT
  Age: 65 Year
  Sex: Female
  Weight: 58.3 kg

DRUGS (3)
  1. MEROPENEM [Suspect]
     Active Substance: MEROPENEM
     Indication: Meningitis bacterial
     Dosage: OVER 1 H (2.0 G EVERY 8 H OR 6.0 G/DAY)
     Route: 040
  2. VANCOMYCIN [Suspect]
     Active Substance: VANCOMYCIN
     Indication: Meningitis bacterial
     Dosage: OVER 1 H (1.0 G EVERY 12 H)
     Route: 040
  3. OLMESARTAN [Concomitant]
     Active Substance: OLMESARTAN

REACTIONS (2)
  - Acute kidney injury [Recovered/Resolved]
  - Drug interaction [Recovered/Resolved]
